FAERS Safety Report 24189891 (Version 2)
Quarter: 2024Q3

REPORT INFORMATION
  Report Type: Spontaneous
  Country: JP (occurrence: JP)
  Receive Date: 20240808
  Receipt Date: 20240813
  Transmission Date: 20241017
  Serious: Yes (Hospitalization, Other)
  Sender: PFIZER
  Company Number: JP-PFIZER INC-PV202400078018

PATIENT
  Age: 76 Year
  Sex: Female
  Weight: 46 kg

DRUGS (10)
  1. ELREXFIO [Suspect]
     Active Substance: ELRANATAMAB-BCMM
     Indication: Plasma cell myeloma
     Dosage: 12 MG
     Route: 058
     Dates: start: 20240606, end: 20240606
  2. ELREXFIO [Suspect]
     Active Substance: ELRANATAMAB-BCMM
     Dosage: 32 MG, DAILY
     Route: 058
     Dates: start: 20240609, end: 20240609
  3. ELREXFIO [Suspect]
     Active Substance: ELRANATAMAB-BCMM
     Dosage: UNK
  4. EDOXABAN TOSYLATE [Concomitant]
     Active Substance: EDOXABAN TOSYLATE
     Indication: Prophylaxis
     Dosage: 30 MG, 1X/DAY
  5. FLUCONAZOLE [Concomitant]
     Active Substance: FLUCONAZOLE
     Indication: Infection prophylaxis
     Dosage: 100 MG, 1X/DAY
  6. LEVETIRACETAM [Concomitant]
     Active Substance: LEVETIRACETAM
     Indication: Prophylaxis
     Dosage: 500 MG, 2X/DAY
  7. VALACYCLOVIR HYDROCHLORIDE [Concomitant]
     Active Substance: VALACYCLOVIR HYDROCHLORIDE
     Indication: Prophylaxis
     Dosage: 500 MG, 1X/DAY
  8. PAXIL CR [Concomitant]
     Active Substance: PAROXETINE HYDROCHLORIDE
     Indication: Depression
     Dosage: 12.5 MG, 1X/DAY
  9. AMITRIPTYLINE HYDROCHLORIDE [Concomitant]
     Active Substance: AMITRIPTYLINE HYDROCHLORIDE
     Indication: Pain prophylaxis
     Dosage: 40 MG, 1X/DAY; UNIT 10 MG
  10. HYDROMORPHONE HYDROCHLORIDE [Concomitant]
     Active Substance: HYDROMORPHONE HYDROCHLORIDE
     Indication: Cancer pain
     Dosage: 12 MG, 1X/DAY

REACTIONS (3)
  - Pyrexia [Recovered/Resolved]
  - Fall [Not Recovered/Not Resolved]
  - Extradural haematoma [Not Recovered/Not Resolved]

NARRATIVE: CASE EVENT DATE: 20240612
